FAERS Safety Report 9322601 (Version 1)
Quarter: 2013Q2

REPORT INFORMATION
  Report Type: Spontaneous
  Country: DE (occurrence: DE)
  Receive Date: 20130531
  Receipt Date: 20130531
  Transmission Date: 20140414
  Serious: Yes (Life-Threatening)
  Sender: FDA-Public Use
  Company Number: DE-ASTRAZENECA-2013SE29665

PATIENT
  Age: 84 Year
  Sex: Male
  Weight: 60 kg

DRUGS (11)
  1. BRILIQUE [Suspect]
     Indication: ACUTE MYOCARDIAL INFARCTION
     Route: 048
     Dates: start: 201204, end: 201304
  2. ASS [Concomitant]
     Indication: ACUTE MYOCARDIAL INFARCTION
     Route: 048
     Dates: start: 20130414
  3. CARVEDIOL [Concomitant]
     Route: 048
  4. ATACAND [Concomitant]
     Route: 048
  5. CALCIMAGON [Concomitant]
     Route: 048
  6. FLUVASTATIN [Concomitant]
     Route: 048
  7. TORASEMID [Concomitant]
     Route: 048
  8. DUROGESIC [Concomitant]
  9. PANTOZOL [Concomitant]
     Route: 048
     Dates: start: 201204
  10. UNACID PD [Concomitant]
  11. FERROSANOL DUODENAL [Concomitant]
     Route: 048

REACTIONS (10)
  - Decreased appetite [Recovered/Resolved]
  - Gastritis erosive [Recovered/Resolved]
  - Malaise [Recovered/Resolved]
  - Diverticulum intestinal [Recovered/Resolved]
  - Erosive oesophagitis [Recovered/Resolved]
  - Abdominal discomfort [Recovered/Resolved]
  - Diarrhoea [Recovered/Resolved]
  - Gastrointestinal haemorrhage [Recovered/Resolved]
  - Melaena [Recovered/Resolved]
  - Diarrhoea [Recovered/Resolved]
